FAERS Safety Report 4548196-5 (Version None)
Quarter: 2004Q4

REPORT INFORMATION
  Report Type: 
  Country: None (occurrence: None)
  Receive Date: 20041227
  Receipt Date: 20040927
  Transmission Date: 20050328
  Serious: No
  Sender: FDA-Public Use
  Company Number: 04P-163-0275288-00

PATIENT

DRUGS (1)
  1. HUMIRA [Suspect]

REACTIONS (2)
  - NEURALGIA [None]
  - TRIGEMINAL NEURALGIA [None]
